FAERS Safety Report 7279232-3 (Version None)
Quarter: 2011Q1

REPORT INFORMATION
  Report Type: 
  Country: None (occurrence: None)
  Receive Date: 20110207
  Receipt Date: 20110203
  Transmission Date: 20110831
  Serious: Yes (Hospitalization, Other)
  Sender: FDA-Public Use
  Company Number: JP-ABBOTT-10P-087-0647014-00

PATIENT
  Sex: Male
  Weight: 101 kg

DRUGS (15)
  1. LOXOPROFEN SODIUM HYDRATE [Suspect]
     Indication: BACK PAIN
     Dosage: 60 MILIIGRAMS DAILY
     Route: 048
     Dates: start: 20040121, end: 20100522
  2. LOXOPROFEN SODIUM HYDRATE [Suspect]
  3. LOXOPROFEN SODIUM HYDRATE [Concomitant]
     Indication: PRODUCT USED FOR UNKNOWN INDICATION
     Dates: start: 20040121, end: 20100522
  4. ETRETINATE [Concomitant]
     Indication: PSORIASIS
     Route: 048
     Dates: start: 20090612
  5. CETIRIZINE HYDROCHLORIDE [Concomitant]
     Indication: PSORIASIS
     Route: 048
     Dates: start: 20100523
  6. BROTIZOLAM [Concomitant]
     Indication: INSOMNIA
     Route: 048
     Dates: start: 20090205
  7. ANTIBIOTICS-RESISTANT LACTIC ACID BACTERIAE [Concomitant]
     Indication: PROPHYLAXIS
     Route: 048
     Dates: start: 20100526
  8. REBAMIPIDE [Concomitant]
     Indication: GASTRITIS
     Route: 048
     Dates: start: 20080212, end: 20100522
  9. ANTIBIOTICS-RESISTANT LACTIC ACID BACTERIAE [Concomitant]
     Indication: DIARRHOEA
  10. NIFEDIPINE [Concomitant]
     Indication: HYPERTENSION
     Route: 048
     Dates: start: 20081001
  11. HUMIRA [Suspect]
     Indication: PSORIASIS
     Route: 058
     Dates: start: 20100415, end: 20100415
  12. HUMIRA [Suspect]
     Route: 058
     Dates: start: 20100430, end: 20100513
  13. ALLOPURINOL [Suspect]
     Indication: HYPERURICAEMIA
     Dosage: 200 MILLIGRAMS DAILY
     Route: 048
     Dates: start: 20040511, end: 20100522
  14. ALLOPURINOL [Concomitant]
     Dates: start: 20040511, end: 20100522
  15. CETIRIZINE HYDROCHLORIDE [Concomitant]
     Indication: PRURITUS

REACTIONS (8)
  - DECREASED APPETITE [None]
  - BACK PAIN [None]
  - PSORIASIS [None]
  - RENAL IMPAIRMENT [None]
  - C-REACTIVE PROTEIN INCREASED [None]
  - PYREXIA [None]
  - DIARRHOEA [None]
  - DEHYDRATION [None]
